FAERS Safety Report 4665951-1 (Version None)
Quarter: 2005Q2

REPORT INFORMATION
  Report Type: 
  Country: None (occurrence: None)
  Receive Date: 20050517
  Receipt Date: 20050517
  Transmission Date: 20051028
  Serious: Yes (Life-Threatening, Hospitalization)
  Sender: FDA-Public Use
  Company Number: None

PATIENT
  Age: 53 Year
  Sex: Female
  Weight: 72.5755 kg

DRUGS (4)
  1. VESICARE [Suspect]
     Indication: HYPERTONIC BLADDER
     Dosage: 5 MG  DAILY ORAL
     Route: 048
     Dates: start: 20050418, end: 20050511
  2. CELEXA [Concomitant]
  3. PROTONIX [Concomitant]
  4. SYNTHROID [Concomitant]

REACTIONS (5)
  - DIZZINESS [None]
  - DYSPNOEA [None]
  - ORAL DISCOMFORT [None]
  - SUPRAVENTRICULAR TACHYCARDIA [None]
  - VISUAL DISTURBANCE [None]
